FAERS Safety Report 6517502-4 (Version None)
Quarter: 2009Q4

REPORT INFORMATION
  Report Type: 
  Country: None (occurrence: None)
  Receive Date: 20091224
  Receipt Date: 20091223
  Transmission Date: 20100525
  Serious: Yes (Other)
  Sender: FDA-Public Use
  Company Number: DE-WYE-G04933009

PATIENT
  Sex: Male
  Weight: 13 kg

DRUGS (1)
  1. RAPAMUNE [Suspect]
     Indication: LIVER TRANSPLANT
     Dates: start: 20080801

REACTIONS (1)
  - DECREASED IMMUNE RESPONSIVENESS [None]
